FAERS Safety Report 9353269 (Version 2)
Quarter: 2013Q3

REPORT INFORMATION
  Report Type: Spontaneous
  Country: US (occurrence: US)
  Receive Date: 20130618
  Receipt Date: 20130807
  Transmission Date: 20140515
  Serious: No
  Sender: FDA-Public Use
  Company Number: US-PFIZER INC-2013181674

PATIENT
  Age: 40 Year
  Sex: Female

DRUGS (7)
  1. DILANTIN-125 [Suspect]
     Dosage: UNK
  2. ASPIRIN [Suspect]
     Dosage: UNK
  3. PERCOCET [Suspect]
     Dosage: UNK
  4. TEGRETOL [Suspect]
     Dosage: UNK
  5. PROMETHAZINE [Concomitant]
     Dosage: 25 MG Q 4-6 (ILLEGIBLE) PRN
     Route: 048
  6. GABAPENTIN [Concomitant]
     Dosage: 250 MG, 3X/DAY
  7. ESTRADIOL [Concomitant]
     Dosage: 1 MG, 1X/DAY
     Route: 048

REACTIONS (1)
  - Drug hypersensitivity [Unknown]
